FAERS Safety Report 4329734-4 (Version None)
Quarter: 2004Q2

REPORT INFORMATION
  Report Type: 
  Country: None (occurrence: None)
  Receive Date: 20040401
  Receipt Date: 20040326
  Transmission Date: 20050107
  Serious: Yes (Other)
  Sender: FDA-Public Use
  Company Number: US-GLAXOSMITHKLINE-A0504850A

PATIENT
  Age: 24 Year
  Sex: Female

DRUGS (6)
  1. COMBIVIR [Suspect]
     Indication: HIV INFECTION
     Route: 048
     Dates: start: 20040205, end: 20040303
  2. EPIVIR [Suspect]
     Indication: HIV INFECTION
     Dosage: 300MG PER DAY
     Route: 048
     Dates: start: 20040303, end: 20040313
  3. NELFINAVIR [Concomitant]
     Indication: HIV INFECTION
     Dosage: 2500MG PER DAY
     Route: 048
     Dates: start: 20040205, end: 20040303
  4. TENOFOVIR [Concomitant]
     Indication: HIV INFECTION
     Dosage: 300MG PER DAY
     Route: 048
     Dates: start: 20040303, end: 20040313
  5. NEVIRAPINE [Concomitant]
     Indication: HIV INFECTION
     Dosage: 200MG PER DAY
     Route: 048
     Dates: start: 20040303, end: 20040317
  6. NEVIRAPINE [Concomitant]
     Dosage: 400MG PER DAY
     Route: 048
     Dates: start: 20040318

REACTIONS (7)
  - ABORTION SPONTANEOUS [None]
  - CHORIOAMNIONITIS [None]
  - DRUG EXPOSURE DURING PREGNANCY [None]
  - INFARCTION [None]
  - INFLAMMATION [None]
  - METRORRHAGIA [None]
  - THROMBOSIS [None]
